FAERS Safety Report 11772681 (Version 1)
Quarter: 2015Q4

REPORT INFORMATION
  Report Type: Spontaneous
  Country: US (occurrence: US)
  Receive Date: 20151124
  Receipt Date: 20151124
  Transmission Date: 20160304
  Serious: Yes (Other)
  Sender: FDA-Public Use
  Company Number: US-MALLINCKRODT-T201404557

PATIENT
  Sex: Male

DRUGS (1)
  1. GABLOFEN [Suspect]
     Active Substance: BACLOFEN
     Indication: MUSCLE SPASTICITY
     Dosage: FLEX DOSING
     Route: 037

REACTIONS (10)
  - Seizure [Unknown]
  - Depressed level of consciousness [Unknown]
  - Areflexia [Unknown]
  - Autonomic nervous system imbalance [Unknown]
  - Bradycardia [Unknown]
  - Clonus [Unknown]
  - Hypotension [Unknown]
  - Hypotonia [Unknown]
  - Overdose [Unknown]
  - Unresponsive to stimuli [Unknown]

NARRATIVE: CASE EVENT DATE: 2008
